FAERS Safety Report 7776273-4 (Version None)
Quarter: 2011Q3

REPORT INFORMATION
  Report Type: 
  Country: None (occurrence: None)
  Receive Date: 20110926
  Receipt Date: 20110913
  Transmission Date: 20111222
  Serious: No
  Sender: FDA-Public Use
  Company Number: AU-JNJFOC-20110907131

PATIENT
  Sex: Female
  Weight: 55 kg

DRUGS (2)
  1. DURAGESIC-100 [Suspect]
     Indication: CANCER PAIN
     Dosage: 25UG/HR ONCE EVERY 3 DAYS+12.5 UG/HR
     Route: 062
     Dates: start: 20110817
  2. DURAGESIC-100 [Suspect]
     Dosage: 25UG/HR+12.5 UG/HR
     Route: 062

REACTIONS (3)
  - DRUG ADMINISTERED AT INAPPROPRIATE SITE [None]
  - INAPPROPRIATE SCHEDULE OF DRUG ADMINISTRATION [None]
  - PRODUCT QUALITY ISSUE [None]
